FAERS Safety Report 7967063-8 (Version None)
Quarter: 2011Q4

REPORT INFORMATION
  Report Type: 
  Country: None (occurrence: None)
  Receive Date: 20111209
  Receipt Date: 20111129
  Transmission Date: 20120403
  Serious: Yes (Hospitalization)
  Sender: FDA-Public Use
  Company Number: US-JNJFOC-20111201223

PATIENT
  Sex: Female
  Weight: 39.01 kg

DRUGS (4)
  1. EXTRA STRENGTH TYLENOL [Suspect]
     Indication: NASOPHARYNGITIS
     Route: 048
     Dates: start: 20111101, end: 20111127
  2. EXTRA STRENGTH TYLENOL [Suspect]
     Indication: PULMONARY CONGESTION
     Route: 048
     Dates: start: 20111101, end: 20111127
  3. SPIRIVA [Concomitant]
     Indication: CHRONIC OBSTRUCTIVE PULMONARY DISEASE
  4. ADVAIR DISKUS 100/50 [Concomitant]
     Indication: CHRONIC OBSTRUCTIVE PULMONARY DISEASE

REACTIONS (3)
  - MENTAL STATUS CHANGES [None]
  - HEPATIC FAILURE [None]
  - PNEUMONIA [None]
